FAERS Safety Report 21905793 (Version 1)
Quarter: 2023Q1

REPORT INFORMATION
  Report Type: Spontaneous
  Country: NL (occurrence: NL)
  Receive Date: 20230124
  Receipt Date: 20230124
  Transmission Date: 20230418
  Serious: Yes (Life-Threatening)
  Sender: FDA-Public Use
  Company Number: None

PATIENT
  Sex: Female
  Weight: 55 kg

DRUGS (1)
  1. NAPROXEN [Suspect]
     Active Substance: NAPROXEN
     Indication: Chronic recurrent multifocal osteomyelitis
     Dosage: 500 MILLIGRAM DAILY; 2DD 1 PC ,  BRAND NAME NOT SPECIFIED
     Dates: start: 20221001, end: 20230103

REACTIONS (5)
  - Depressed mood [Recovering/Resolving]
  - Poor quality sleep [Recovering/Resolving]
  - Dizziness [Recovering/Resolving]
  - Fatigue [Recovering/Resolving]
  - Somnolence [Recovering/Resolving]
